FAERS Safety Report 5589496-X (Version None)
Quarter: 2008Q1

REPORT INFORMATION
  Report Type: 
  Country: None (occurrence: None)
  Receive Date: 20080109
  Receipt Date: 20071219
  Transmission Date: 20080703
  Serious: Yes (Other)
  Sender: FDA-Public Use
  Company Number: 2008EU000016

PATIENT
  Age: 63 Year
  Sex: Female
  Weight: 63 kg

DRUGS (7)
  1. PROGRAF [Suspect]
     Indication: RENAL TRANSPLANT
     Dosage: 15 MG, ORAL, 0.00 MG, 1.5 MG, ORAL
     Route: 048
     Dates: end: 20071210
  2. PROGRAF [Suspect]
     Indication: RENAL TRANSPLANT
     Dosage: 15 MG, ORAL, 0.00 MG, 1.5 MG, ORAL
     Route: 048
     Dates: start: 20071211, end: 20071220
  3. PROGRAF [Suspect]
     Indication: RENAL TRANSPLANT
     Dosage: 15 MG, ORAL, 0.00 MG, 1.5 MG, ORAL
     Route: 048
     Dates: start: 20071220
  4. CELLCEPT [Concomitant]
  5. URBASON (METHYLPREDNISOLONE) [Concomitant]
  6. PRAVASTATIN [Concomitant]
  7. ROCALTROL [Concomitant]

REACTIONS (5)
  - ACCIDENTAL OVERDOSE [None]
  - BLOOD CREATININE INCREASED [None]
  - DIZZINESS [None]
  - ENTERITIS [None]
  - HYPOTENSION [None]
